FAERS Safety Report 7795610-8 (Version None)
Quarter: 2011Q3

REPORT INFORMATION
  Report Type: 
  Country: None (occurrence: None)
  Receive Date: 20110930
  Receipt Date: 20110926
  Transmission Date: 20111222
  Serious: Yes (Death, Hospitalization)
  Sender: FDA-Public Use
  Company Number: 2009SP028574

PATIENT
  Age: 47 Year
  Sex: Female
  Weight: 117.9352 kg

DRUGS (2)
  1. NUVARING [Suspect]
     Indication: MENSTRUAL DISORDER
     Dates: start: 20070411, end: 20081014
  2. NUVARING [Suspect]
     Indication: MENORRHAGIA
     Dates: start: 20070411, end: 20081014

REACTIONS (34)
  - CERVICAL POLYP [None]
  - BRADYCARDIA [None]
  - ATRIOVENTRICULAR BLOCK COMPLETE [None]
  - CARDIAC ARREST [None]
  - ACUTE HEPATIC FAILURE [None]
  - RESPIRATORY FAILURE [None]
  - ACIDOSIS [None]
  - DECREASED APPETITE [None]
  - FLUID OVERLOAD [None]
  - RESPIRATORY DISTRESS [None]
  - PULMONARY HYPERTENSION [None]
  - THROMBOSIS [None]
  - HEPATOMEGALY [None]
  - VENTRICULAR DYSFUNCTION [None]
  - MENORRHAGIA [None]
  - DIZZINESS [None]
  - PULMONARY EMBOLISM [None]
  - HEART RATE IRREGULAR [None]
  - PLATELET COUNT DECREASED [None]
  - EXERCISE ELECTROCARDIOGRAM ABNORMAL [None]
  - CARDIAC FAILURE CONGESTIVE [None]
  - PULMONARY OEDEMA [None]
  - PLEURAL EFFUSION [None]
  - URINARY INCONTINENCE [None]
  - HAEMOGLOBIN DECREASED [None]
  - ABDOMINAL PAIN UPPER [None]
  - OLIGURIA [None]
  - HEPATITIS ACUTE [None]
  - WHITE BLOOD CELL COUNT INCREASED [None]
  - DISSEMINATED INTRAVASCULAR COAGULATION [None]
  - UROSEPSIS [None]
  - HYPOTENSION [None]
  - FAECAL INCONTINENCE [None]
  - RIGHT VENTRICULAR FAILURE [None]
